FAERS Safety Report 15009581 (Version 1)
Quarter: 2018Q2

REPORT INFORMATION
  Report Type: Spontaneous
  Country: FR (occurrence: FR)
  Receive Date: 20180614
  Receipt Date: 20180614
  Transmission Date: 20180711
  Serious: Yes (Hospitalization)
  Sender: FDA-Public Use
  Company Number: FR-009507513-1806FRA003460

PATIENT
  Age: 87 Year
  Sex: Female
  Weight: 55 kg

DRUGS (1)
  1. INVANZ [Suspect]
     Active Substance: ERTAPENEM SODIUM
     Indication: DEVICE RELATED INFECTION
     Dosage: 1 G, QD
     Route: 058
     Dates: start: 20180403, end: 20180417

REACTIONS (2)
  - Confusional state [Recovered/Resolved]
  - Disorientation [Recovered/Resolved]

NARRATIVE: CASE EVENT DATE: 20180415
